FAERS Safety Report 5910745-X (Version None)
Quarter: 2008Q4

REPORT INFORMATION
  Report Type: 
  Country: None (occurrence: None)
  Receive Date: 20081007
  Receipt Date: 20080410
  Transmission Date: 20090506
  Serious: Yes (Other)
  Sender: FDA-Public Use
  Company Number: US-ASTRAZENECA-2008UW07411

PATIENT
  Sex: Female
  Weight: 60.8 kg

DRUGS (3)
  1. ARIMIDEX [Suspect]
     Indication: BREAST CANCER
     Route: 048
     Dates: start: 20070101
  2. FOSAMAX [Concomitant]
     Indication: OSTEOPOROSIS
  3. SYNTHROID [Concomitant]

REACTIONS (1)
  - OSTEOPENIA [None]
